FAERS Safety Report 6176000-0 (Version None)
Quarter: 2009Q2

REPORT INFORMATION
  Report Type: 
  Country: None (occurrence: None)
  Receive Date: 20090501
  Receipt Date: 20080104
  Transmission Date: 20091009
  Serious: Yes (Hospitalization)
  Sender: FDA-Public Use
  Company Number: US-ALEXION-A200700116

PATIENT
  Sex: Female

DRUGS (24)
  1. SOLIRIS [Suspect]
     Indication: PAROXYSMAL NOCTURNAL HAEMOGLOBINURIA
     Dosage: 900 MG, SINGLE
     Route: 042
     Dates: start: 20070515, end: 20070515
  2. SOLIRIS [Suspect]
     Dosage: 900 MG, SINGLE
     Route: 042
     Dates: start: 20071002, end: 20071002
  3. SOLIRIS [Suspect]
     Dosage: 900 MG, SINGLE
     Route: 042
     Dates: start: 20071016, end: 20071016
  4. SOLIRIS [Suspect]
     Dosage: 900 MG, SINGLE
     Route: 042
     Dates: start: 20071030, end: 20071030
  5. SOLIRIS [Suspect]
     Dosage: 900 MG, SINGLE
     Route: 042
     Dates: start: 20071113, end: 20071113
  6. SOLIRIS [Suspect]
     Dosage: 900 MG, SINGLE
     Route: 042
     Dates: start: 20071127, end: 20071127
  7. SOLIRIS [Suspect]
     Dosage: 900 MG, SINGLE
     Route: 042
     Dates: start: 20071211, end: 20071211
  8. SOLIRIS [Suspect]
     Dosage: 900 MG, SINGLE
     Route: 042
     Dates: start: 20071226, end: 20071226
  9. SOLIRIS [Suspect]
     Dosage: 900 MG, SINGLE
     Route: 042
     Dates: start: 20080108, end: 20080108
  10. SOLIRIS [Suspect]
     Dosage: 900 MG, SINGLE
     Route: 042
     Dates: start: 20080122, end: 20080122
  11. SOLIRIS [Suspect]
     Dosage: 900 MG, SINGLE
     Route: 042
     Dates: start: 20080205, end: 20080205
  12. SOLIRIS [Suspect]
     Dosage: 900 MG, SINGLE
     Route: 042
     Dates: start: 20080219, end: 20080219
  13. SOLIRIS [Suspect]
     Dosage: 900 MG, SINGLE
     Route: 042
     Dates: start: 20080304, end: 20080304
  14. SOLIRIS [Suspect]
     Dosage: 900 MG, SINGLE
     Route: 042
     Dates: start: 20080318, end: 20080318
  15. SOLIRIS [Suspect]
     Dosage: 900 MG, SINGLE
     Route: 042
     Dates: start: 20080401, end: 20080401
  16. SOLIRIS [Suspect]
     Dosage: 900 MG, SINGLE
     Route: 042
     Dates: start: 20080415, end: 20080415
  17. SOLIRIS [Suspect]
     Dosage: 900 MG, SINGLE
     Route: 042
     Dates: start: 20080429, end: 20080429
  18. SOLIRIS [Suspect]
     Dosage: 900 MG, SINGLE
     Route: 042
     Dates: start: 20080513, end: 20080513
  19. SOLIRIS [Suspect]
     Dosage: 900 MG, SINGLE
     Route: 042
     Dates: start: 20080527, end: 20080527
  20. SOLIRIS [Suspect]
     Dosage: UNK
  21. CALCIUM [Concomitant]
     Dosage: QD
     Route: 048
  22. FOLIC ACID [Concomitant]
     Dosage: QD
     Route: 048
  23. CENTRUM /00554501/ [Concomitant]
     Dosage: QD
     Route: 048
  24. ZYRTEC [Concomitant]
     Indication: SEASONAL ALLERGY
     Route: 048

REACTIONS (7)
  - FATIGUE [None]
  - HAEMATOCRIT DECREASED [None]
  - HAEMOGLOBIN DECREASED [None]
  - HEADACHE [None]
  - NASOPHARYNGITIS [None]
  - NEPHROLITHIASIS [None]
  - PNEUMONIA [None]
